FAERS Safety Report 7764349-7 (Version None)
Quarter: 2011Q3

REPORT INFORMATION
  Report Type: 
  Country: None (occurrence: None)
  Receive Date: 20110921
  Receipt Date: 20110908
  Transmission Date: 20111222
  Serious: Yes (Hospitalization)
  Sender: FDA-Public Use
  Company Number: US-NOVOPROD-334735

PATIENT
  Sex: Male
  Weight: 155.56 kg

DRUGS (4)
  1. CRESTOR [Concomitant]
     Indication: BLOOD CHOLESTEROL INCREASED
  2. VICTOZA [Suspect]
     Indication: TYPE 2 DIABETES MELLITUS
     Dosage: 1.8 MG, QD
     Route: 058
     Dates: start: 20100101, end: 20110701
  3. COZAAR [Concomitant]
     Indication: HYPERTENSION
  4. VICTOZA [Suspect]
     Dosage: 1.8 MG, QD
     Route: 058
     Dates: start: 20110801

REACTIONS (4)
  - CHOLELITHIASIS [None]
  - CHEST DISCOMFORT [None]
  - LIVER ABSCESS [None]
  - WEIGHT DECREASED [None]
